FAERS Safety Report 23711356 (Version 1)
Quarter: 2024Q2

REPORT INFORMATION
  Report Type: Spontaneous
  Country: US (occurrence: None)
  Receive Date: 20240405
  Receipt Date: 20240405
  Transmission Date: 20240716
  Serious: No
  Sender: FDA-Public Use
  Company Number: US-Axsome Therapeutics, Inc.-AXS202402-000108

PATIENT
  Age: 24 Year
  Sex: Female

DRUGS (6)
  1. SUNOSI [Suspect]
     Active Substance: SOLRIAMFETOL
     Indication: Narcolepsy
     Route: 048
     Dates: start: 202311
  2. SUNOSI [Suspect]
     Active Substance: SOLRIAMFETOL
     Route: 048
  3. SUNOSI [Suspect]
     Active Substance: SOLRIAMFETOL
     Dosage: CUTS 150 MG TABLET IN HALF AND TAKES IT TWICE A DAY, 1/2 TAB IN THE MORNING AND 1/2 TABLET 4 HOURS L
     Route: 048
  4. SUNOSI [Suspect]
     Active Substance: SOLRIAMFETOL
     Dosage: IN THE MORNING
     Route: 048
  5. LYRICA [Concomitant]
     Active Substance: PREGABALIN
     Indication: Fibromyalgia
     Dosage: UNK
     Route: 065
  6. PROVIGIL [Concomitant]
     Active Substance: MODAFINIL
     Indication: Product used for unknown indication
     Route: 065
     Dates: start: 20240304

REACTIONS (5)
  - Malaise [Unknown]
  - Palpitations [Unknown]
  - Adverse event [Unknown]
  - Therapeutic product effect incomplete [Unknown]
  - Inappropriate schedule of product administration [Unknown]

NARRATIVE: CASE EVENT DATE: 20230101
